FAERS Safety Report 4541908-6 (Version None)
Quarter: 2004Q4

REPORT INFORMATION
  Report Type: 
  Country: None (occurrence: None)
  Receive Date: 20041229
  Receipt Date: 20041229
  Transmission Date: 20050328
  Serious: Yes (Life-Threatening, Hospitalization, Disabling, Congenital Anomaly, Other)
  Sender: FDA-Public Use
  Company Number: None

PATIENT
  Age: 27 Year
  Sex: Female
  Weight: 58.9676 kg

DRUGS (1)
  1. ZOLOFT [Suspect]
     Indication: DEPRESSION
     Dosage: ONCE AT NIGHT
     Dates: start: 20031201, end: 20041201

REACTIONS (36)
  - AGGRESSION [None]
  - AGITATION [None]
  - ARRHYTHMIA [None]
  - ARTHRALGIA [None]
  - ASTHENIA [None]
  - BACK PAIN [None]
  - CARDIAC FLUTTER [None]
  - CHEST PAIN [None]
  - DEPRESSION [None]
  - DISTURBANCE IN ATTENTION [None]
  - DRUG ADDICT [None]
  - DRUG DEPENDENCE [None]
  - DRUG WITHDRAWAL SYNDROME [None]
  - ERECTILE DYSFUNCTION [None]
  - FEAR [None]
  - FEELING ABNORMAL [None]
  - HALLUCINATION, AUDITORY [None]
  - HEART RATE IRREGULAR [None]
  - HYPERACUSIS [None]
  - HYPERTONIA [None]
  - HYPOAESTHESIA [None]
  - IRRITABILITY [None]
  - LIBIDO DECREASED [None]
  - MOOD SWINGS [None]
  - MORBID THOUGHTS [None]
  - MYALGIA [None]
  - PALPITATIONS [None]
  - PANIC ATTACK [None]
  - PARANOIA [None]
  - PHOTOPHOBIA [None]
  - RHINITIS [None]
  - ROAD TRAFFIC ACCIDENT [None]
  - SOCIAL PHOBIA [None]
  - SUICIDAL IDEATION [None]
  - TINNITUS [None]
  - YAWNING [None]
